FAERS Safety Report 16922864 (Version 1)
Quarter: 2019Q4

REPORT INFORMATION
  Report Type: Spontaneous
  Country: CA (occurrence: CA)
  Receive Date: 20191016
  Receipt Date: 20191016
  Transmission Date: 20200122
  Serious: Yes (Death)
  Sender: FDA-Public Use
  Company Number: CA-TEVA-2019-CA-1122097

PATIENT
  Age: 55 Year
  Sex: Male

DRUGS (15)
  1. SILDENAFIL CITRATE. [Suspect]
     Active Substance: SILDENAFIL CITRATE
     Indication: PULMONARY ARTERIAL HYPERTENSION
     Dosage: 60 MILLIGRAM DAILY;
     Route: 048
  2. VALPROATE SEMISODIUM [Concomitant]
     Active Substance: DIVALPROEX SODIUM
  3. UPTRAVI [Concomitant]
     Active Substance: SELEXIPAG
  4. UPTRAVI [Concomitant]
     Active Substance: SELEXIPAG
     Route: 065
  5. VOLIBRIS [Concomitant]
     Active Substance: AMBRISENTAN
  6. AMLODIPINE [Concomitant]
     Active Substance: AMLODIPINE BESYLATE
  7. DOXAZOSIN [Concomitant]
     Active Substance: DOXAZOSIN MESYLATE
  8. ELTROXIN [Concomitant]
     Active Substance: LEVOTHYROXINE
  9. FUROSEMIDE. [Concomitant]
     Active Substance: FUROSEMIDE
  10. RAMIPRIL. [Concomitant]
     Active Substance: RAMIPRIL
  11. ALFACALCIDOL [Concomitant]
     Active Substance: ALFACALCIDOL
  12. OLANZAPINE. [Concomitant]
     Active Substance: OLANZAPINE
  13. ESCITALOPRAM [Concomitant]
     Active Substance: ESCITALOPRAM OXALATE
  14. ATENOLOL. [Concomitant]
     Active Substance: ATENOLOL
  15. BENZTROPINE MESYLATE. [Concomitant]
     Active Substance: BENZTROPINE MESYLATE

REACTIONS (2)
  - Death [Fatal]
  - Diarrhoea [Fatal]
